FAERS Safety Report 4627564-7 (Version None)
Quarter: 2005Q2

REPORT INFORMATION
  Report Type: 
  Country: None (occurrence: None)
  Receive Date: 20050405
  Receipt Date: 20050323
  Transmission Date: 20051028
  Serious: Yes (Other)
  Sender: FDA-Public Use
  Company Number: HQWYE405928MAR05

PATIENT
  Sex: Female

DRUGS (3)
  1. PREMPRO [Suspect]
  2. ESTRACE [Suspect]
  3. PREMARIN [Suspect]

REACTIONS (1)
  - THROMBOSIS [None]
